FAERS Safety Report 21940172 (Version 1)
Quarter: 2023Q1

REPORT INFORMATION
  Report Type: Report from Study
  Country: US (occurrence: US)
  Receive Date: 20230201
  Receipt Date: 20230201
  Transmission Date: 20230418
  Serious: No
  Sender: FDA-Public Use
  Company Number: US-EXELIXIS-CABO-22049815

PATIENT
  Age: 61 Year
  Sex: Male

DRUGS (1)
  1. CABOMETYX [Suspect]
     Active Substance: CABOZANTINIB S-MALATE
     Indication: Product used for unknown indication
     Dosage: 20 MG, QD
     Route: 048
     Dates: start: 202201

REACTIONS (7)
  - Anxiety [Unknown]
  - Insomnia [Unknown]
  - Frequent bowel movements [Unknown]
  - Dry skin [Unknown]
  - Pain in extremity [Unknown]
  - Palmar-plantar erythrodysaesthesia syndrome [Unknown]
  - Dysphonia [Unknown]

NARRATIVE: CASE EVENT DATE: 20220301
